FAERS Safety Report 24996664 (Version 3)
Quarter: 2025Q1

REPORT INFORMATION
  Report Type: Spontaneous
  Country: US (occurrence: US)
  Receive Date: 20250221
  Receipt Date: 20250227
  Transmission Date: 20250409
  Serious: No
  Sender: GRIFOLS
  Company Number: US-IGSA-BIG0032801

PATIENT
  Age: 84 Year
  Sex: Male
  Weight: 82.1 kg

DRUGS (23)
  1. GAMUNEX-C [Suspect]
     Active Substance: HUMAN IMMUNOGLOBULIN G
     Indication: Encephalitis
     Dosage: 50 GRAM, Q.4WK.
     Route: 042
     Dates: start: 20250127, end: 20250127
  2. GAMUNEX-C [Suspect]
     Active Substance: HUMAN IMMUNOGLOBULIN G
     Indication: Encephalomyelitis
     Dates: start: 20250210, end: 20250210
  3. GAMUNEX-C [Suspect]
     Active Substance: HUMAN IMMUNOGLOBULIN G
     Indication: Cerebellar ataxia
  4. GAMUNEX-C [Suspect]
     Active Substance: HUMAN IMMUNOGLOBULIN G
     Indication: Off label use
  5. AMLODIPINE [Concomitant]
     Active Substance: AMLODIPINE BESYLATE
  6. ASPIRIN [Concomitant]
     Active Substance: ASPIRIN
  7. AZELASTINE [Concomitant]
     Active Substance: AZELASTINE
  8. DESLORATADINE [Concomitant]
     Active Substance: DESLORATADINE
  9. DIAZEPAM [Concomitant]
     Active Substance: DIAZEPAM
  10. VITAMIN D NOS [Concomitant]
     Active Substance: CHOLECALCIFEROL\ERGOCALCIFEROL
  11. FENOFIBRATE [Concomitant]
     Active Substance: FENOFIBRATE
  12. FINASTERIDE [Concomitant]
     Active Substance: FINASTERIDE
  13. FLUOROURACIL [Concomitant]
     Active Substance: FLUOROURACIL
     Route: 061
  14. JARDIANCE [Concomitant]
     Active Substance: EMPAGLIFLOZIN
  15. LOSARTAN [Concomitant]
     Active Substance: LOSARTAN
  16. PANTOPRAZOLE [Concomitant]
     Active Substance: PANTOPRAZOLE
  17. POTASSIUM [Concomitant]
     Active Substance: POTASSIUM
  18. SILODOSIN [Concomitant]
     Active Substance: SILODOSIN
  19. TADALAFIL [Concomitant]
     Active Substance: TADALAFIL
  20. IPRATROPIUM [Concomitant]
     Active Substance: IPRATROPIUM
  21. FLUTICASONE [Concomitant]
     Active Substance: FLUTICASONE
  22. BUTALBITAL, ACETAMINOPHEN, AND CAFFEINE [Concomitant]
     Active Substance: ACETAMINOPHEN\BUTALBITAL\CAFFEINE
  23. RITUXAN [Concomitant]
     Active Substance: RITUXIMAB

REACTIONS (7)
  - Hypersensitivity [Recovered/Resolved]
  - Rash [Recovered/Resolved]
  - Pruritus [Recovered/Resolved]
  - Heart rate increased [Recovered/Resolved]
  - Blood pressure increased [Recovered/Resolved]
  - Pyrexia [Recovered/Resolved]
  - Urticaria [Recovered/Resolved]

NARRATIVE: CASE EVENT DATE: 20250127
